FAERS Safety Report 21074075 (Version 1)
Quarter: 2022Q3

REPORT INFORMATION
  Report Type: Other
  Country: US (occurrence: US)
  Receive Date: 20220713
  Receipt Date: 20220713
  Transmission Date: 20221027
  Serious: No
  Sender: FDA-Public Use
  Company Number: US-DECIPHERA PHARMACEUTICALS LLC-2022US000561

PATIENT
  Sex: Male

DRUGS (2)
  1. QINLOCK [Suspect]
     Active Substance: RIPRETINIB
     Indication: Gastrointestinal stromal tumour
     Dosage: 150 MILLIGRAM, QD
     Route: 048
     Dates: start: 20211217
  2. DRONABINOL [Concomitant]
     Active Substance: DRONABINOL
     Indication: Weight gain poor

REACTIONS (4)
  - Weight gain poor [Unknown]
  - Dizziness [Unknown]
  - Palpitations [Unknown]
  - Defiant behaviour [Unknown]
